FAERS Safety Report 10641092 (Version 1)
Quarter: 2014Q4

REPORT INFORMATION
  Report Type: Spontaneous
  Country: CH (occurrence: CH)
  Receive Date: 20141209
  Receipt Date: 20141209
  Transmission Date: 20150529
  Serious: Yes (Hospitalization, Other)
  Sender: FDA-Public Use
  Company Number: CH-WATSON-2014-26316

PATIENT
  Age: 84 Year
  Sex: Female

DRUGS (1)
  1. CLONIDINE (UNKNOWN) [Suspect]
     Active Substance: CLONIDINE
     Indication: BACK PAIN
     Dosage: 180 ?G, DAILY
     Route: 037

REACTIONS (8)
  - Syncope [Recovered/Resolved]
  - Confusional state [Recovered/Resolved]
  - Nausea [Recovered/Resolved]
  - Device infusion issue [Unknown]
  - Hallucination, visual [Recovered/Resolved]
  - Hypertension [Recovered/Resolved]
  - Vomiting [Recovered/Resolved]
  - Accidental overdose [Recovered/Resolved]
